FAERS Safety Report 14109197 (Version 1)
Quarter: 2017Q4

REPORT INFORMATION
  Report Type: Spontaneous
  Country: NL (occurrence: NL)
  Receive Date: 20171019
  Receipt Date: 20171019
  Transmission Date: 20180321
  Serious: Yes (Other)
  Sender: FDA-Public Use
  Company Number: NL-PFIZER INC-2017451234

PATIENT
  Age: 69 Year
  Sex: Male
  Weight: 84 kg

DRUGS (8)
  1. ATORVASTATINE PFIZER [Suspect]
     Active Substance: ATORVASTATIN
     Indication: CARDIOVASCULAR EVENT PROPHYLAXIS
     Dosage: 40 MG, 1X/DAY
     Route: 048
     Dates: start: 20120920
  2. CALCIUMCARB/COLECALC [Concomitant]
     Dosage: 1 DF, 1X/DAY (1.25 G/800IU)
     Route: 048
  3. VENTOLIN  100 [Concomitant]
     Dosage: 100 UG, AS NEEDED
     Route: 055
  4. CARBASALAATCALCIUM [Concomitant]
     Active Substance: CARBASPIRIN
     Dosage: 100 MG, 1X/DAY
     Route: 048
  5. FLUTICASON-PROPIONAAT [Concomitant]
     Dosage: 50 UG, 2X/DAY
     Route: 045
  6. LOSARTAN AND HYDROCHLOROTHIAZIDE [Concomitant]
     Active Substance: HYDROCHLOROTHIAZIDE\LOSARTAN POTASSIUM
     Dosage: 1 DF, 1X/DAY (100/12.5 MG)
     Route: 048
  7. PANTOPRAZOL [Concomitant]
     Active Substance: PANTOPRAZOLE SODIUM
     Dosage: 40 MG, 1X/DAY
     Route: 048
  8. SALMETEROL/FLUTICASONE CASCAN [Concomitant]
     Active Substance: FLUTICASONE PROPIONATE\SALMETEROL XINAFOATE
     Dosage: 1 DF, 2X/DAY (50/500 UG)
     Route: 055

REACTIONS (1)
  - Muscle atrophy [Not Recovered/Not Resolved]

NARRATIVE: CASE EVENT DATE: 20140920
